FAERS Safety Report 7108610-8 (Version None)
Quarter: 2010Q4

REPORT INFORMATION
  Report Type: 
  Country: None (occurrence: None)
  Receive Date: 20101115
  Receipt Date: 20101115
  Transmission Date: 20110411
  Serious: Yes (Life-Threatening, Hospitalization, Disabling)
  Sender: FDA-Public Use
  Company Number: None

PATIENT
  Sex: Female
  Weight: 89.1 kg

DRUGS (1)
  1. BUPROPION SR (GENERIC FOR WELLBUTRIN SR) 150MG TABLETS UNSURE [Suspect]
     Indication: DEPRESSION
     Dosage: 2 TABLETS DAILY ORAL
     Route: 048
     Dates: start: 20100510, end: 20100521

REACTIONS (10)
  - ABDOMINAL DISCOMFORT [None]
  - BLISTER [None]
  - DIALYSIS [None]
  - HERPES ZOSTER [None]
  - HYPOAESTHESIA [None]
  - NAUSEA [None]
  - RENAL FAILURE [None]
  - SKIN EXFOLIATION [None]
  - SUNBURN [None]
  - VOCAL CORD DISORDER [None]
